FAERS Safety Report 13550582 (Version 1)
Quarter: 2017Q2

REPORT INFORMATION
  Report Type: Spontaneous
  Country: US (occurrence: US)
  Receive Date: 20170516
  Receipt Date: 20170516
  Transmission Date: 20170830
  Serious: Yes (Other)
  Sender: FDA-Public Use
  Company Number: US-PFIZER INC-2017210463

PATIENT
  Age: 76 Year
  Sex: Female
  Weight: 45 kg

DRUGS (4)
  1. GABAPENTIN. [Suspect]
     Active Substance: GABAPENTIN
     Dosage: 300 MG, 1X/DAY
     Dates: start: 20170506
  2. ATENOLOL. [Concomitant]
     Active Substance: ATENOLOL
     Indication: HYPERTENSION
     Dosage: ONCE AT NIGHT
  3. GABAPENTIN. [Suspect]
     Active Substance: GABAPENTIN
     Indication: SCIATICA
     Dosage: 600 MG, 1X/DAY AT NIGHT
     Dates: start: 2017, end: 2017
  4. KEPPRA [Concomitant]
     Active Substance: LEVETIRACETAM
     Indication: AMNESIA
     Dosage: 1 DF, 2X/DAY 1 AT NIGHT AND 1 IN THE MORNING

REACTIONS (6)
  - Osteoarthritis [Unknown]
  - Hypoaesthesia [Not Recovered/Not Resolved]
  - Drug ineffective for unapproved indication [Not Recovered/Not Resolved]
  - Paraesthesia [Not Recovered/Not Resolved]
  - Hypokinesia [Unknown]
  - Finger deformity [Unknown]

NARRATIVE: CASE EVENT DATE: 2017
